FAERS Safety Report 13137754 (Version 1)
Quarter: 2017Q1

REPORT INFORMATION
  Report Type: Spontaneous
  Country: US (occurrence: US)
  Receive Date: 20170123
  Receipt Date: 20170123
  Transmission Date: 20170428
  Serious: No
  Sender: FDA-Public Use
  Company Number: US-UNITED THERAPEUTICS-UNT-2016-008801

PATIENT
  Age: 73 Year
  Sex: Female
  Weight: 98.87 kg

DRUGS (5)
  1. REMODULIN [Suspect]
     Active Substance: TREPROSTINIL
     Indication: PULMONARY HYPERTENSION
     Dosage: 0.032 ?G/KG, CONTINUING
     Route: 058
     Dates: start: 20160325
  2. LETAIRIS [Suspect]
     Active Substance: AMBRISENTAN
     Dosage: UNK
     Route: 065
  3. ADCIRCA [Concomitant]
     Active Substance: TADALAFIL
     Indication: PRODUCT USED FOR UNKNOWN INDICATION
  4. COUMADIN [Concomitant]
     Active Substance: WARFARIN SODIUM
     Indication: PRODUCT USED FOR UNKNOWN INDICATION
  5. LETAIRIS [Suspect]
     Active Substance: AMBRISENTAN
     Indication: PRODUCT USED FOR UNKNOWN INDICATION
     Dosage: 10 MG, QD
     Route: 065
     Dates: start: 20160107

REACTIONS (15)
  - Headache [Unknown]
  - Infusion site pain [Unknown]
  - Infusion site erythema [Unknown]
  - Infusion site discharge [Unknown]
  - Pain in jaw [Unknown]
  - Infusion site haemorrhage [Unknown]
  - Infusion site inflammation [Unknown]
  - Body temperature increased [Unknown]
  - Infusion site oedema [Unknown]
  - Flushing [Unknown]
  - Nausea [Unknown]
  - Infusion site warmth [Unknown]
  - Infusion site discolouration [Unknown]
  - Infusion site infection [Unknown]
  - Dizziness [Unknown]

NARRATIVE: CASE EVENT DATE: 201605
